FAERS Safety Report 6087992-2 (Version None)
Quarter: 2009Q1

REPORT INFORMATION
  Report Type: 
  Country: None (occurrence: None)
  Receive Date: 20090219
  Receipt Date: 20090206
  Transmission Date: 20090719
  Serious: Yes (Hospitalization)
  Sender: FDA-Public Use
  Company Number: 173445

PATIENT
  Age: 75 Year
  Sex: Male

DRUGS (6)
  1. CARBOPLATIN [Suspect]
     Dosage: 890.6 MG, INTRAVENOUS
     Route: 042
     Dates: start: 20081027
  2. PACLITAXEL [Suspect]
     Dosage: 440 MG, INTRAVENOUS
     Route: 042
     Dates: start: 20081027
  3. PIOGLITAZONE [Concomitant]
  4. GLIPIZIDE [Concomitant]
  5. METFORMIN HCL [Concomitant]
  6. HYDROCHLOROTHIAZIDE [Concomitant]

REACTIONS (5)
  - BONE PAIN [None]
  - CONSTIPATION [None]
  - DEHYDRATION [None]
  - DIARRHOEA [None]
  - FATIGUE [None]
